FAERS Safety Report 9166904 (Version 2)
Quarter: 2013Q2

REPORT INFORMATION
  Report Type: Spontaneous
  Country: GB (occurrence: GB)
  Receive Date: 20130318
  Receipt Date: 20130404
  Transmission Date: 20140414
  Serious: No
  Sender: FDA-Public Use
  Company Number: PHHY2013GB024950

PATIENT
  Sex: Male

DRUGS (4)
  1. SIMVASTATIN [Suspect]
     Indication: HYPERLIPIDAEMIA
     Dosage: 20 MG, QD
     Route: 048
     Dates: start: 20090618, end: 201009
  2. SIMVASTATIN [Suspect]
     Dosage: 40 MG, ONCE DAILY
     Route: 048
     Dates: start: 201009, end: 20130221
  3. LORAZEPAM [Suspect]
     Dosage: 1 MG, TID
     Route: 048
     Dates: start: 20130114
  4. BUPRENORPHINE [Concomitant]
     Indication: PAIN
     Dosage: 20 UG, QW
     Route: 061

REACTIONS (4)
  - Gait disturbance [Unknown]
  - Muscular weakness [Unknown]
  - Arthralgia [Unknown]
  - Blood creatine phosphokinase increased [Unknown]
